FAERS Safety Report 5199111-5 (Version None)
Quarter: 2007Q1

REPORT INFORMATION
  Report Type: 
  Country: None (occurrence: None)
  Receive Date: 20070104
  Receipt Date: 20061205
  Transmission Date: 20070707
  Serious: Yes (Death)
  Sender: FDA-Public Use
  Company Number: US-SHR-US-2006-037138

PATIENT
  Age: 53 Year
  Sex: Male

DRUGS (1)
  1. BETASERON [Suspect]
     Route: 058
     Dates: start: 20051115, end: 20060301

REACTIONS (3)
  - ASTHENIA [None]
  - DEATH [None]
  - DIARRHOEA [None]
